FAERS Safety Report 4697822-9 (Version None)
Quarter: 2005Q2

REPORT INFORMATION
  Report Type: 
  Country: None (occurrence: None)
  Receive Date: 20050621
  Receipt Date: 20050607
  Transmission Date: 20051028
  Serious: Yes (Hospitalization)
  Sender: FDA-Public Use
  Company Number: 2005BI007433

PATIENT
  Age: 46 Year
  Sex: Female
  Weight: 43.0917 kg

DRUGS (6)
  1. AVONEX [Suspect]
     Indication: MULTIPLE SCLEROSIS
     Dosage: 30 UG; QW; IM
     Route: 030
     Dates: start: 19960101
  2. AVONEX [Suspect]
     Indication: MULTIPLE SCLEROSIS
     Dosage: 30 UG; QW; IM
     Route: 030
  3. PHENOBARBITAL [Concomitant]
  4. FIORICET [Concomitant]
  5. VALIUM [Concomitant]
  6. SOMA [Concomitant]

REACTIONS (4)
  - LOSS OF CONSCIOUSNESS [None]
  - MALNUTRITION [None]
  - VICTIM OF SPOUSAL ABUSE [None]
  - WEIGHT DECREASED [None]
